FAERS Safety Report 6622168-9 (Version None)
Quarter: 2010Q1

REPORT INFORMATION
  Report Type: 
  Country: None (occurrence: None)
  Receive Date: 20100305
  Receipt Date: 20100218
  Transmission Date: 20100710
  Serious: Yes (Other)
  Sender: FDA-Public Use
  Company Number: US-000051

PATIENT
  Sex: Male
  Weight: 60 kg

DRUGS (1)
  1. KUVAN [Suspect]
     Indication: PHENYLKETONURIA
     Dosage: (1200 MG, 20 MG/KG ORAL)
     Route: 048
     Dates: start: 20060508

REACTIONS (3)
  - CONVULSION [None]
  - FALL [None]
  - TONIC CLONIC MOVEMENTS [None]
